FAERS Safety Report 14417585 (Version 1)
Quarter: 2018Q1

REPORT INFORMATION
  Report Type: Spontaneous
  Country: US (occurrence: US)
  Receive Date: 20180119
  Receipt Date: 20180119
  Transmission Date: 20180509
  Serious: No
  Sender: FDA-Public Use
  Company Number: None

PATIENT
  Age: 76 Year
  Sex: Male

DRUGS (16)
  1. PROCHLORPERAZINE. [Concomitant]
     Active Substance: PROCHLORPERAZINE
  2. METFORMIN [Concomitant]
     Active Substance: METFORMIN HYDROCHLORIDE
  3. ASPIRIN. [Concomitant]
     Active Substance: ASPIRIN
  4. MAGNESIUM [Concomitant]
     Active Substance: MAGNESIUM
  5. LOSARTAN. [Concomitant]
     Active Substance: LOSARTAN
  6. POTASSIUM [Concomitant]
     Active Substance: POTASSIUM
  7. ZOFRAN [Concomitant]
     Active Substance: ONDANSETRON HYDROCHLORIDE
  8. GABAPENTIN. [Concomitant]
     Active Substance: GABAPENTIN
  9. ATORVASTATIN [Concomitant]
     Active Substance: ATORVASTATIN
  10. PREDNISONE. [Concomitant]
     Active Substance: PREDNISONE
  11. LONSURF [Suspect]
     Active Substance: TIPIRACIL HYDROCHLORIDE\TRIFLURIDINE
     Indication: COLON CANCER
     Dosage: 40MG DAYS 1-5, 8-12 TWICE DAILY ORAL (28 DAY CYCLE)
     Route: 048
     Dates: start: 20170809
  12. METOPROLOL. [Concomitant]
     Active Substance: METOPROLOL
  13. LONSURF [Suspect]
     Active Substance: TIPIRACIL HYDROCHLORIDE\TRIFLURIDINE
     Indication: COLON CANCER
     Dosage: 30MG DAYS 1-5,8-12 TWICE DAILY ORAL (28 DAY CYCLE)
     Route: 048
     Dates: start: 20170809
  14. AMLODIPINE [Concomitant]
     Active Substance: AMLODIPINE BESYLATE
  15. CETAPHIL CLEANSER [Concomitant]
  16. DOXYCYCLINE. [Concomitant]
     Active Substance: DOXYCYCLINE

REACTIONS (1)
  - Unevaluable event [None]
